FAERS Safety Report 9771454 (Version 2)
Quarter: 2013Q4

REPORT INFORMATION
  Report Type: Spontaneous
  Country: DK (occurrence: DK)
  Receive Date: 20131219
  Receipt Date: 20131219
  Transmission Date: 20140711
  Serious: Yes (Life-Threatening, Hospitalization, Other)
  Sender: FDA-Public Use
  Company Number: DK-ROCHE-1304943

PATIENT
  Age: 66 Year
  Sex: Male
  Weight: 81 kg

DRUGS (8)
  1. AVASTIN [Suspect]
     Indication: NEOPLASM MALIGNANT
     Route: 042
     Dates: start: 20130707, end: 20131025
  2. AVASTIN [Suspect]
     Route: 065
     Dates: start: 201006
  3. AVASTIN [Suspect]
     Route: 065
     Dates: start: 201306, end: 2013
  4. 5-FU [Concomitant]
     Indication: NEOPLASM MALIGNANT
     Route: 065
     Dates: start: 20130707
  5. 5-FU [Concomitant]
     Route: 065
     Dates: start: 201306
  6. IRINOTECAN HYDROCHLORIDE TRIHYDRATE [Concomitant]
     Indication: NEOPLASM MALIGNANT
     Route: 065
     Dates: start: 20130707
  7. IRINOTECAN HYDROCHLORIDE TRIHYDRATE [Concomitant]
     Route: 065
     Dates: start: 201306
  8. FOLINIC ACID [Concomitant]
     Route: 065
     Dates: start: 201306

REACTIONS (5)
  - Enterovesical fistula [Recovered/Resolved]
  - Cystitis [Unknown]
  - Pyrexia [Unknown]
  - Disease progression [Unknown]
  - General physical health deterioration [Not Recovered/Not Resolved]
